FAERS Safety Report 22523581 (Version 1)
Quarter: 2023Q2

REPORT INFORMATION
  Report Type: Report from Study
  Country: US (occurrence: None)
  Receive Date: 20230606
  Receipt Date: 20230606
  Transmission Date: 20230721
  Serious: Yes (Hospitalization)
  Sender: FDA-Public Use
  Company Number: US-ROCHE-3330813

PATIENT
  Age: 66 Year
  Sex: Female
  Weight: 70.3 kg

DRUGS (7)
  1. ATEZOLIZUMAB [Suspect]
     Active Substance: ATEZOLIZUMAB
     Indication: Triple negative breast cancer
     Dosage: LAST DOSE OF STUDY MEDICATION ATEZOLIZUMAB WAS 05-APR-2023,
     Route: 041
     Dates: start: 20210727
  2. EGANELISIB [Suspect]
     Active Substance: EGANELISIB
     Indication: Triple negative breast cancer
     Dosage: THE PATIENT^S LAST DOSE OF STUDY MEDICATION IPI-549 WAS 06-APR-2023,
     Route: 048
     Dates: start: 20210727
  3. PACLITAXEL [Suspect]
     Active Substance: PACLITAXEL
     Indication: Triple negative breast cancer
     Dosage: LAST DOSE OF STUDY MEDICATIONS NAB-PACLITAXEL WAS 29-DEC-2021
     Route: 042
     Dates: start: 20210727
  4. TYLENOL [Concomitant]
     Active Substance: ACETAMINOPHEN
  5. CHONDROITIN SULFATE (BOVINE)\GLUCOSAMINE HYDROCHLORIDE [Concomitant]
     Active Substance: CHONDROITIN SULFATE (BOVINE)\GLUCOSAMINE HYDROCHLORIDE
  6. ADVIL [Concomitant]
     Active Substance: IBUPROFEN
  7. MAGNESIUM [Concomitant]
     Active Substance: MAGNESIUM

REACTIONS (1)
  - Diabetes mellitus [Recovered/Resolved with Sequelae]

NARRATIVE: CASE EVENT DATE: 20230406
